FAERS Safety Report 6105130-4 (Version None)
Quarter: 2009Q1

REPORT INFORMATION
  Report Type: 
  Country: None (occurrence: None)
  Receive Date: 20090306
  Receipt Date: 20090224
  Transmission Date: 20090719
  Serious: Yes (Other)
  Sender: FDA-Public Use
  Company Number: ES-BRISTOL-MYERS SQUIBB COMPANY-14523740

PATIENT
  Age: 40 Year
  Sex: Male

DRUGS (6)
  1. EFAVIRENZ [Suspect]
     Indication: HIV INFECTION
     Dates: start: 20000929, end: 20020712
  2. DIDANOSINE [Suspect]
     Indication: HIV INFECTION
     Dates: start: 20000929, end: 20020712
  3. STAVUDINE [Suspect]
     Indication: HIV INFECTION
     Dates: start: 20000929, end: 20020712
  4. ZIDOVUDINE [Concomitant]
     Dates: start: 20020712
  5. ABACAVIR [Concomitant]
     Dates: start: 20020712
  6. LAMIVUDINE [Concomitant]
     Dates: start: 20020712

REACTIONS (2)
  - DRUG RESISTANCE [None]
  - TRANSAMINASES INCREASED [None]
